FAERS Safety Report 6505014-3 (Version None)
Quarter: 2009Q4

REPORT INFORMATION
  Report Type: 
  Country: None (occurrence: None)
  Receive Date: 20091218
  Receipt Date: 20091211
  Transmission Date: 20100525
  Serious: Yes (Hospitalization, Other)
  Sender: FDA-Public Use
  Company Number: FI-WYE-G05144509

PATIENT
  Sex: Female

DRUGS (1)
  1. TORISEL [Suspect]
     Indication: RENAL CELL CARCINOMA
     Route: 042
     Dates: start: 20091207, end: 20091207

REACTIONS (3)
  - ABDOMINAL PAIN [None]
  - NON-CARDIAC CHEST PAIN [None]
  - TYPE IV HYPERSENSITIVITY REACTION [None]
